FAERS Safety Report 5324478-4 (Version None)
Quarter: 2007Q2

REPORT INFORMATION
  Report Type: 
  Country: None (occurrence: None)
  Receive Date: 20070514
  Receipt Date: 20070502
  Transmission Date: 20071010
  Serious: Yes (Death)
  Sender: FDA-Public Use
  Company Number: FR-PFIZER INC-2006082120

PATIENT
  Sex: Male

DRUGS (16)
  1. VFEND [Suspect]
     Indication: BRONCHOPULMONARY ASPERGILLOSIS
     Route: 048
     Dates: start: 20060609, end: 20060622
  2. CYTARABINE [Concomitant]
  3. VANCOMYCIN [Concomitant]
  4. ESOMEPRAZOLE MAGNESIUM [Concomitant]
  5. DIHYDROERGOTAMINE MESYLATE [Concomitant]
  6. CIPROFLOXACIN [Concomitant]
  7. PIPERACILLIN [Concomitant]
  8. PARACETAMOL [Concomitant]
  9. RITUXIMAB [Concomitant]
  10. CISPLATIN [Concomitant]
  11. PREDNISONE TAB [Concomitant]
  12. CEFTRIAXONE [Concomitant]
  13. FLUCONAZOLE [Concomitant]
  14. OMEPRAZOLE [Concomitant]
  15. ESOMEPRAZOLE MAGNESIUM [Concomitant]
  16. CILASTATIN [Concomitant]

REACTIONS (9)
  - ASCITES [None]
  - BLOOD ALBUMIN DECREASED [None]
  - BLOOD ALKALINE PHOSPHATASE INCREASED [None]
  - BLOOD BILIRUBIN INCREASED [None]
  - DRUG TOXICITY [None]
  - GAMMA-GLUTAMYLTRANSFERASE INCREASED [None]
  - HEPATOSPLENOMEGALY [None]
  - JAUNDICE [None]
  - PYREXIA [None]
